FAERS Safety Report 10136342 (Version 2)
Quarter: 2014Q2

REPORT INFORMATION
  Report Type: Spontaneous
  Country: CA (occurrence: CA)
  Receive Date: 20140429
  Receipt Date: 20140604
  Transmission Date: 20141212
  Serious: Yes (Other)
  Sender: FDA-Public Use
  Company Number: CA-ELI_LILLY_AND_COMPANY-CA201404005626

PATIENT
  Age: 46 Year
  Sex: Female
  Weight: 53.06 kg

DRUGS (10)
  1. STRATTERA [Suspect]
     Indication: ATTENTION DEFICIT/HYPERACTIVITY DISORDER
     Dosage: 40 MG, UNKNOWN
     Route: 048
     Dates: start: 201301
  2. STRATTERA [Interacting]
     Dosage: 60 MG, UNKNOWN
     Route: 048
     Dates: start: 20130925
  3. NOVO-KETOCONAZOLE [Interacting]
     Indication: FUNGAL INFECTION
     Dosage: 200 MG, BID
     Route: 048
     Dates: end: 20131022
  4. CITALOPRAM [Concomitant]
     Indication: DEPRESSION
     Dosage: UNK, UNKNOWN
     Route: 065
  5. CITALOPRAM [Concomitant]
     Indication: ANXIETY
  6. CO Q-10 [Concomitant]
     Indication: PRODUCT USED FOR UNKNOWN INDICATION
     Dosage: UNK, UNKNOWN
     Route: 065
  7. MAGNESIUM [Concomitant]
     Indication: PRODUCT USED FOR UNKNOWN INDICATION
     Dosage: UNK, UNKNOWN
     Route: 065
  8. NABILONE [Concomitant]
     Indication: INSOMNIA
     Dosage: 1 MG, EACH EVENING
     Route: 065
  9. NABILONE [Concomitant]
     Indication: FIBROMYALGIA
  10. VITAMIN D [Concomitant]
     Indication: PRODUCT USED FOR UNKNOWN INDICATION
     Dosage: UNK, UNKNOWN
     Route: 065

REACTIONS (16)
  - Suicidal behaviour [Unknown]
  - Altered state of consciousness [Recovering/Resolving]
  - Sensory disturbance [Recovering/Resolving]
  - Tinnitus [Recovering/Resolving]
  - Disorientation [Recovering/Resolving]
  - Fungal infection [Unknown]
  - Mood swings [Recovering/Resolving]
  - Memory impairment [Recovering/Resolving]
  - Confusional state [Recovering/Resolving]
  - Irritability [Recovering/Resolving]
  - Blood pressure increased [Recovering/Resolving]
  - Lethargy [Recovering/Resolving]
  - Nausea [Recovering/Resolving]
  - Somnolence [Recovering/Resolving]
  - Drug interaction [Recovered/Resolved]
  - Asthenia [Recovering/Resolving]
